FAERS Safety Report 4864816-X (Version None)
Quarter: 2005Q4

REPORT INFORMATION
  Report Type: 
  Country: None (occurrence: None)
  Receive Date: 20051201
  Receipt Date: 20050706
  Transmission Date: 20060501
  Serious: No
  Sender: FDA-Public Use
  Company Number: 2005PV000276

PATIENT
  Age: 80 Year
  Sex: Male
  Weight: 59.8748 kg

DRUGS (11)
  1. BYETTA [Suspect]
     Indication: DIABETES MELLITUS NON-INSULIN-DEPENDENT
     Dosage: 5 UG; BID; SC
     Route: 058
     Dates: start: 20050630
  2. LIPITOR [Concomitant]
  3. ALTACE [Concomitant]
  4. TOPROL-XL [Concomitant]
  5. LASIX [Concomitant]
  6. DIGOXIN [Concomitant]
  7. GLYBURIDE [Concomitant]
  8. ASPIRIN [Concomitant]
  9. HUMULIN 70/30 [Concomitant]
  10. GLUCOPHAGE [Concomitant]
  11. AVANDIA [Concomitant]

REACTIONS (12)
  - ASTHENIA [None]
  - BLOOD GLUCOSE INCREASED [None]
  - CONSTIPATION [None]
  - DECREASED APPETITE [None]
  - DYSPHONIA [None]
  - FATIGUE [None]
  - GASTROOESOPHAGEAL REFLUX DISEASE [None]
  - HICCUPS [None]
  - HYPOGLYCAEMIA [None]
  - INSOMNIA [None]
  - NAUSEA [None]
  - WEIGHT DECREASED [None]
